FAERS Safety Report 5676914-1 (Version None)
Quarter: 2008Q1

REPORT INFORMATION
  Report Type: 
  Country: None (occurrence: None)
  Receive Date: 20080324
  Receipt Date: 20080312
  Transmission Date: 20080703
  Serious: Yes (Other)
  Sender: FDA-Public Use
  Company Number: JP-MERCK-0802USA02911

PATIENT
  Age: 83 Year
  Sex: Male
  Weight: 53 kg

DRUGS (11)
  1. HYZAAR [Suspect]
     Indication: HYPERTENSION
     Route: 048
     Dates: start: 20070511, end: 20080127
  2. COZAAR [Suspect]
     Indication: HYPERTENSION
     Route: 048
     Dates: start: 20080128, end: 20080130
  3. ATELEC [Suspect]
     Route: 048
     Dates: start: 20080131
  4. AMARYL [Suspect]
     Route: 048
     Dates: start: 20071226
  5. MIGLITOL [Suspect]
     Route: 048
     Dates: start: 20080130
  6. ARICEPT [Suspect]
     Route: 048
     Dates: start: 20080125
  7. TOLEDOMIN [Suspect]
     Route: 048
     Dates: start: 20010607
  8. RIZE [Concomitant]
     Route: 048
  9. PREDNISONE [Concomitant]
     Route: 048
  10. LACTOMIN [Concomitant]
     Route: 048
  11. INSULIN [Concomitant]
     Route: 065

REACTIONS (9)
  - ANOREXIA [None]
  - BLOOD PRESSURE INCREASED [None]
  - GLYCOSYLATED HAEMOGLOBIN INCREASED [None]
  - NIGHT SWEATS [None]
  - OEDEMA PERIPHERAL [None]
  - POLLAKIURIA [None]
  - POLYURIA [None]
  - TACHYCARDIA [None]
  - TREMOR [None]
